FAERS Safety Report 6725705-9 (Version None)
Quarter: 2010Q2

REPORT INFORMATION
  Report Type: 
  Country: None (occurrence: None)
  Receive Date: 20100513
  Receipt Date: 20100513
  Transmission Date: 20101027
  Serious: Yes (Other)
  Sender: FDA-Public Use
  Company Number: None

PATIENT
  Age: 38 Year
  Sex: Female
  Weight: 106.5953 kg

DRUGS (1)
  1. CYMBALTA [Suspect]
     Indication: PANIC ATTACK
     Dosage: 60MG ONE DAILY PO
     Route: 048
     Dates: start: 20100415, end: 20100504

REACTIONS (13)
  - ABNORMAL DREAMS [None]
  - DIZZINESS [None]
  - DRUG WITHDRAWAL SYNDROME [None]
  - FATIGUE [None]
  - HEADACHE [None]
  - MOBILITY DECREASED [None]
  - NAUSEA [None]
  - NIGHTMARE [None]
  - PAIN [None]
  - SLEEP DISORDER [None]
  - SOCIAL AVOIDANT BEHAVIOUR [None]
  - SOMNOLENCE [None]
  - VISION BLURRED [None]
